FAERS Safety Report 25018956 (Version 1)
Quarter: 2025Q1

REPORT INFORMATION
  Report Type: Spontaneous
  Country: US (occurrence: US)
  Receive Date: 20250227
  Receipt Date: 20250227
  Transmission Date: 20250409
  Serious: No
  Sender: AVADEL CNS PHARMACEUTICALS, LLC
  Company Number: US-AVADEL CNS PHARMACEUTICALS, LLC-2025AVA00193

PATIENT
  Sex: Female
  Weight: 60.771 kg

DRUGS (2)
  1. LUMRYZ [Suspect]
     Active Substance: SODIUM OXYBATE
     Indication: Narcolepsy
     Dosage: 6 G, ONCE NIGHTLY
     Dates: start: 2024
  2. COUPLE OF DRINKS [Concomitant]

REACTIONS (3)
  - Intentional dose omission [Recovered/Resolved]
  - Illness [Recovered/Resolved]
  - Product administration interrupted [Recovered/Resolved]
